FAERS Safety Report 16073510 (Version 1)
Quarter: 2019Q1

REPORT INFORMATION
  Report Type: Spontaneous
  Country: GB (occurrence: GB)
  Receive Date: 20190314
  Receipt Date: 20190314
  Transmission Date: 20190418
  Serious: Yes (Hospitalization)
  Sender: FDA-Public Use
  Company Number: GB-TEVA-2019-GB-1023148

PATIENT
  Age: 68 Year
  Sex: Female

DRUGS (17)
  1. GAVISCON ADVANCE [Concomitant]
     Active Substance: POTASSIUM BICARBONATE\SODIUM ALGINATE
     Dosage: 5-10ML
     Route: 048
  2. NITROLINGUAL [Concomitant]
     Active Substance: NITROGLYCERIN
     Route: 060
  3. CODIPAR [Concomitant]
     Dosage: 15MG/500MG, 1-2 CAPSULES UP TO FOUR TIMES DAILY
  4. CARBOCISTEINE [Suspect]
     Active Substance: CARBOCYSTEINE
     Dosage: 1500 MILLIGRAM DAILY;
     Route: 065
  5. VENLAFAXINE [Concomitant]
     Active Substance: VENLAFAXINE HYDROCHLORIDE
     Dosage: 150 MILLIGRAM DAILY;
  6. CLOPIDOGREL [Suspect]
     Active Substance: CLOPIDOGREL BISULFATE
     Dosage: 75 MILLIGRAM DAILY;
  7. OXYNORM [Concomitant]
     Active Substance: OXYCODONE HYDROCHLORIDE
     Dosage: 5MG/5ML,
     Route: 048
  8. CALCITRIOL. [Concomitant]
     Active Substance: CALCITRIOL
     Dosage: 250 NANOGRAM DAILY;
  9. CETIRIZINE [Concomitant]
     Active Substance: CETIRIZINE HYDROCHLORIDE
     Dosage: 10 MILLIGRAM DAILY;
  10. TILDIEM [Concomitant]
     Active Substance: DILTIAZEM HYDROCHLORIDE
     Dosage: 300 DOSAGE FORMS DAILY;
  11. SALBUTAMOL [Concomitant]
     Active Substance: ALBUTEROL
     Dosage: PUFFS
     Route: 055
  12. ATORVASTATIN [Concomitant]
     Active Substance: ATORVASTATIN
     Dosage: 20 MILLIGRAM DAILY; NIGHT
  13. VISCOTEARS [Concomitant]
     Active Substance: CARBOMER
     Dosage: 2MG/G
  14. CREON [Concomitant]
     Active Substance: PANCRELIPASE AMYLASE\PANCRELIPASE LIPASE\PANCRELIPASE PROTEASE
     Dosage: 6 DOSAGE FORMS DAILY; WITH MEALS + 2 AS NEEDED WITH SNACKS
  15. LANSOPRAZOLE. [Concomitant]
     Active Substance: LANSOPRAZOLE
     Dosage: 30 MILLIGRAM DAILY; MORNING
  16. LACTULOSE. [Concomitant]
     Active Substance: LACTULOSE
     Dosage: 15 ML DAILY; 3.1-3.7G/5ML,
     Route: 048
  17. CASSIA [Concomitant]
     Indication: CONSTIPATION
     Dosage: ONE OR TWO TO BE TAKEN AT NIGHT

REACTIONS (2)
  - Abdominal pain [Unknown]
  - Duodenal ulcer [Recovered/Resolved]
